FAERS Safety Report 24629704 (Version 1)
Quarter: 2024Q4

REPORT INFORMATION
  Report Type: Report from Study
  Country: BE (occurrence: BE)
  Receive Date: 20241118
  Receipt Date: 20241118
  Transmission Date: 20250114
  Serious: Yes (Hospitalization, Other)
  Sender: ABBVIE
  Company Number: BE-ABBVIE-6006631

PATIENT
  Age: 53 Year
  Sex: Male
  Weight: 66 kg

DRUGS (3)
  1. HUMIRA [Suspect]
     Active Substance: ADALIMUMAB
     Indication: Colitis ulcerative
     Route: 058
     Dates: start: 20190111, end: 20200911
  2. MEDROL [Concomitant]
     Active Substance: METHYLPREDNISOLONE
     Indication: Colitis ulcerative
     Route: 048
     Dates: start: 202111
  3. ZALDIAR [Concomitant]
     Active Substance: ACETAMINOPHEN\TRAMADOL HYDROCHLORIDE
     Indication: Gastrointestinal pain
     Dosage: TIME INTERVAL: 0.33333333 DAYS: DOSE UNIT: 1 TABLET
     Route: 048
     Dates: start: 202111

REACTIONS (1)
  - Stoma prolapse [Not Recovered/Not Resolved]

NARRATIVE: CASE EVENT DATE: 20241111
